FAERS Safety Report 11560763 (Version 1)
Quarter: 2015Q3

REPORT INFORMATION
  Report Type: Spontaneous
  Country: US (occurrence: US)
  Receive Date: 20150916
  Receipt Date: 20150916
  Transmission Date: 20151125
  Serious: No
  Sender: FDA-Public Use
  Company Number: US-ELI_LILLY_AND_COMPANY-US200810001751

PATIENT
  Age: 63 Year
  Sex: Female

DRUGS (2)
  1. FORTEO [Suspect]
     Active Substance: TERIPARATIDE
     Indication: OSTEOPOROSIS
     Dosage: 20 UG, DAILY (1/D)
     Dates: start: 200702, end: 2007
  2. FORTEO [Suspect]
     Active Substance: TERIPARATIDE
     Dosage: UNK, UNK
     Dates: start: 200802, end: 20081015

REACTIONS (12)
  - Tongue disorder [Unknown]
  - Dysgeusia [Not Recovered/Not Resolved]
  - Bruxism [Unknown]
  - Breath odour [Not Recovered/Not Resolved]
  - Gastrooesophageal reflux disease [Unknown]
  - Arthralgia [Recovered/Resolved]
  - Peripheral swelling [Not Recovered/Not Resolved]
  - Eructation [Not Recovered/Not Resolved]
  - Gait disturbance [Recovered/Resolved]
  - Gastrointestinal disorder [Recovering/Resolving]
  - Headache [Unknown]
  - Fungal infection [Unknown]

NARRATIVE: CASE EVENT DATE: 200710
